FAERS Safety Report 8326948-3 (Version None)
Quarter: 2012Q2

REPORT INFORMATION
  Report Type: 
  Country: None (occurrence: None)
  Receive Date: 20120501
  Receipt Date: 20120418
  Transmission Date: 20120825
  Serious: Yes (Other)
  Sender: FDA-Public Use
  Company Number: TR-MYLANLABS-2012S1008325

PATIENT
  Age: 28 Year
  Sex: Male

DRUGS (3)
  1. ACETAMINOPHEN [Concomitant]
     Route: 065
  2. OXYBUTYNIN [Suspect]
     Indication: DRUG ABUSE
     Dosage: 5 MG/DAY; THEN INCREASED TO 250-500 MG/DAY OVER 3 YEARS
     Route: 065
  3. OXYBUTYNIN [Suspect]
     Dosage: 250-500 MG/DAY (50-100 PILLS)
     Route: 065

REACTIONS (5)
  - DRUG DEPENDENCE [None]
  - DRUG ABUSE [None]
  - DEPRESSION [None]
  - HYPERHIDROSIS [None]
  - ANXIETY [None]
